FAERS Safety Report 8535189-6 (Version None)
Quarter: 2012Q3

REPORT INFORMATION
  Report Type: 
  Country: None (occurrence: None)
  Receive Date: 20120724
  Receipt Date: 20120710
  Transmission Date: 20120928
  Serious: Yes (Other)
  Sender: FDA-Public Use
  Company Number: CHPA2012CA015405

PATIENT
  Age: 77 Year
  Sex: Female

DRUGS (2)
  1. OTRIVIN [Suspect]
     Indication: NASAL CONGESTION
     Dosage: SPRAY WHEN NEEDED
     Route: 048
     Dates: start: 19620101
  2. TETRACYCLINE [Concomitant]
     Dosage: UNK, UNK

REACTIONS (1)
  - CEREBROVASCULAR ACCIDENT [None]
